FAERS Safety Report 5947812-0 (Version None)
Quarter: 2008Q4

REPORT INFORMATION
  Report Type: 
  Country: None (occurrence: None)
  Receive Date: 20081111
  Receipt Date: 20081106
  Transmission Date: 20090506
  Serious: Yes (Hospitalization)
  Sender: FDA-Public Use
  Company Number: US-JNJFOC-20081101825

PATIENT
  Age: 84 Year
  Sex: Female
  Weight: 56.7 kg

DRUGS (2)
  1. NIZORAL [Suspect]
     Route: 061
  2. NIZORAL [Suspect]
     Indication: DANDRUFF
     Route: 061

REACTIONS (1)
  - VERTIGO [None]
